FAERS Safety Report 18251403 (Version 1)
Quarter: 2020Q3

REPORT INFORMATION
  Report Type: Spontaneous
  Country: US (occurrence: US)
  Receive Date: 20200910
  Receipt Date: 20200910
  Transmission Date: 20201103
  Serious: Yes (Other)
  Sender: FDA-Public Use
  Company Number: US-CIPLA LTD.-2020US06283

PATIENT

DRUGS (3)
  1. WARFARIN [Suspect]
     Active Substance: WARFARIN
     Indication: PRODUCT USED FOR UNKNOWN INDICATION
     Dosage: UNK
     Route: 065
  2. 9?TETRAHYDROCANNABINOL [Interacting]
     Active Substance: DRONABINOL
     Dosage: UNK, TITRATED DOSE (INCREASED TO 7.35 MG)
     Route: 065
  3. 9?TETRAHYDROCANNABINOL [Interacting]
     Active Substance: DRONABINOL
     Indication: PAIN
     Dosage: UNK
     Route: 065

REACTIONS (2)
  - Drug interaction [Unknown]
  - Anticoagulation drug level above therapeutic [Recovered/Resolved]
